FAERS Safety Report 17255260 (Version 1)
Quarter: 2020Q1

REPORT INFORMATION
  Report Type: Spontaneous
  Country: US (occurrence: US)
  Receive Date: 20200110
  Receipt Date: 20200110
  Transmission Date: 20200409
  Serious: Yes (Other)
  Sender: FDA-Public Use
  Company Number: US-BEH-2020111371

PATIENT
  Age: 80 Year
  Sex: Female

DRUGS (7)
  1. HIZENTRA [Suspect]
     Active Substance: HUMAN IMMUNOGLOBULIN G
     Dosage: 2 GRAM, QW
     Route: 058
     Dates: start: 20191211, end: 20191231
  2. HIZENTRA [Suspect]
     Active Substance: HUMAN IMMUNOGLOBULIN G
     Dosage: 2 GRAM, TOT
     Route: 058
     Dates: start: 20191216, end: 20191216
  3. HIZENTRA [Suspect]
     Active Substance: HUMAN IMMUNOGLOBULIN G
     Indication: IMMUNODEFICIENCY COMMON VARIABLE
     Dosage: 4 GRAM, QW
     Route: 058
     Dates: start: 20191211, end: 20191231
  4. WARFARIN [Concomitant]
     Active Substance: WARFARIN
  5. HIZENTRA [Suspect]
     Active Substance: HUMAN IMMUNOGLOBULIN G
     Dosage: 4 GRAM, TOT
     Route: 058
     Dates: start: 20191216, end: 20191216
  6. HIZENTRA [Suspect]
     Active Substance: HUMAN IMMUNOGLOBULIN G
     Dosage: 4 GRAM, TOT
     Route: 058
     Dates: start: 20191223, end: 20191223
  7. HIZENTRA [Suspect]
     Active Substance: HUMAN IMMUNOGLOBULIN G
     Dosage: 2 GRAM, TOT
     Route: 058
     Dates: start: 20191223, end: 20191223

REACTIONS (9)
  - Infusion site swelling [Unknown]
  - Infusion site macule [Unknown]
  - Infusion site pain [Recovered/Resolved]
  - Infusion site pruritus [Unknown]
  - Product storage error [Unknown]
  - Infusion site pain [Recovered/Resolved]
  - Product storage error [Recovered/Resolved]
  - Infusion site haemorrhage [Unknown]
  - Infusion site erythema [Unknown]

NARRATIVE: CASE EVENT DATE: 20191216
